FAERS Safety Report 25595247 (Version 2)
Quarter: 2025Q3

REPORT INFORMATION
  Report Type: Spontaneous
  Country: EU (occurrence: EU)
  Receive Date: 20250723
  Receipt Date: 20250802
  Transmission Date: 20251021
  Serious: Yes (Hospitalization)
  Sender: AUROBINDO
  Company Number: EU-RECORDATI-2025004749

PATIENT
  Age: 64 Year
  Sex: Female

DRUGS (6)
  1. BISOPROLOL [Suspect]
     Active Substance: BISOPROLOL
     Indication: Supraventricular tachycardia
     Route: 065
     Dates: start: 202101, end: 2021
  2. INDAPAMIDE [Suspect]
     Active Substance: INDAPAMIDE
     Indication: Supraventricular tachycardia
     Route: 065
  3. ATORVASTATIN [Suspect]
     Active Substance: ATORVASTATIN
     Indication: Supraventricular tachycardia
     Route: 065
  4. NIFEDIPINE [Suspect]
     Active Substance: NIFEDIPINE
     Indication: Product used for unknown indication
     Route: 065
  5. Lodipine [Concomitant]
     Indication: Product used for unknown indication
     Route: 065
  6. CILOSTAZOL [Concomitant]
     Active Substance: CILOSTAZOL
     Indication: Product used for unknown indication
     Route: 065

REACTIONS (1)
  - Raynaud^s phenomenon [Recovering/Resolving]

NARRATIVE: CASE EVENT DATE: 20210101
